FAERS Safety Report 9306026 (Version 1)
Quarter: 2013Q2

REPORT INFORMATION
  Report Type: Spontaneous
  Country: GR (occurrence: GR)
  Receive Date: 20130523
  Receipt Date: 20130523
  Transmission Date: 20140414
  Serious: Yes (Other)
  Sender: FDA-Public Use
  Company Number: PHHY2013GR050625

PATIENT
  Sex: Male

DRUGS (4)
  1. CICLOSPORIN [Suspect]
     Dosage: (MATERNAL DOSE: 4 MG/KG BODY WEIGHT)
     Route: 064
  2. PREDNISOLONE [Suspect]
     Dosage: (MATERNAL DOSE: 60 MG, UNK)
  3. PREDNISOLONE [Suspect]
     Dosage: (MATERNAL DOSE: 80 MG, UNK)
  4. PREDNISOLONE [Suspect]
     Dosage: (MATERNAL DOSE: 15 MG, UNK)

REACTIONS (3)
  - Low birth weight baby [Unknown]
  - Premature baby [Unknown]
  - Foetal exposure during pregnancy [Unknown]
